FAERS Safety Report 9433555 (Version 1)
Quarter: 2013Q3

REPORT INFORMATION
  Report Type: Spontaneous
  Country: IE (occurrence: IE)
  Receive Date: 20130731
  Receipt Date: 20130731
  Transmission Date: 20140515
  Serious: Yes (Hospitalization)
  Sender: FDA-Public Use
  Company Number: IE-ABBOTT-13P-229-1124690-00

PATIENT
  Sex: Male

DRUGS (2)
  1. HUMIRA [Suspect]
     Indication: PRODUCT USED FOR UNKNOWN INDICATION
     Route: 058
     Dates: start: 201112, end: 201212
  2. HUMIRA [Suspect]
     Route: 058
     Dates: start: 201301, end: 20130625

REACTIONS (2)
  - Proteinuria [Recovered/Resolved]
  - Vasculitic rash [Recovered/Resolved]
